FAERS Safety Report 6908560-3 (Version None)
Quarter: 2010Q3

REPORT INFORMATION
  Report Type: 
  Country: None (occurrence: None)
  Receive Date: 20100805
  Receipt Date: 20100729
  Transmission Date: 20110219
  Serious: Yes (Other)
  Sender: FDA-Public Use
  Company Number: FR-PFIZER INC-2010076880

PATIENT
  Age: 40 Year
  Sex: Male
  Weight: 67 kg

DRUGS (1)
  1. TAHOR [Suspect]
     Indication: TYPE IIA HYPERLIPIDAEMIA
     Dosage: 40 MG, UNK
     Route: 048
     Dates: start: 20000119

REACTIONS (1)
  - ERECTILE DYSFUNCTION [None]
